FAERS Safety Report 17215270 (Version 2)
Quarter: 2020Q1

REPORT INFORMATION
  Report Type: Spontaneous
  Country: MY (occurrence: MY)
  Receive Date: 20191230
  Receipt Date: 20200117
  Transmission Date: 20200409
  Serious: Yes (Other)
  Sender: FDA-Public Use
  Company Number: MY-ASTRAZENECA-2019SF89452

PATIENT
  Age: 42 Day
  Sex: Male
  Weight: 1.2 kg

DRUGS (5)
  1. IRON [Concomitant]
     Active Substance: IRON
     Indication: MINERAL SUPPLEMENTATION
  2. FOLIC ACID. [Concomitant]
     Active Substance: FOLIC ACID
     Indication: VITAMIN SUPPLEMENTATION
     Dates: start: 20191119
  3. CAFFEINE. [Concomitant]
     Active Substance: CAFFEINE
     Indication: PROPHYLAXIS
     Dates: start: 20191130, end: 20191220
  4. SYNAGIS [Suspect]
     Active Substance: PALIVIZUMAB
     Indication: PRODUCT USED FOR UNKNOWN INDICATION
     Route: 030
     Dates: start: 20191217, end: 20191217
  5. APPETON [Concomitant]
     Indication: VITAMIN SUPPLEMENTATION
     Dates: start: 20191119

REACTIONS (4)
  - Wheezing [Unknown]
  - Swelling [Recovering/Resolving]
  - Eye swelling [Recovering/Resolving]
  - Hypersensitivity [Recovered/Resolved]

NARRATIVE: CASE EVENT DATE: 20191217
